FAERS Safety Report 5710813-1 (Version None)
Quarter: 2008Q2

REPORT INFORMATION
  Report Type: 
  Country: None (occurrence: None)
  Receive Date: 20080415
  Receipt Date: 20080404
  Transmission Date: 20081010
  Serious: Yes (Death, Hospitalization)
  Sender: FDA-Public Use
  Company Number: A-CH2007-17099

PATIENT
  Age: 72 Year
  Sex: Female

DRUGS (2)
  1. TRACLEER [Suspect]
     Indication: PULMONARY HYPERTENSION
     Dosage: 125 MG, BID, ORAL, 62.5 MG, BID, ORAL
     Route: 048
     Dates: start: 20070301, end: 20070401
  2. TRACLEER [Suspect]
     Indication: PULMONARY HYPERTENSION
     Dosage: 125 MG, BID, ORAL, 62.5 MG, BID, ORAL
     Route: 048
     Dates: start: 20070401

REACTIONS (18)
  - ATELECTASIS [None]
  - BACK PAIN [None]
  - CARDIOMEGALY [None]
  - CARDIOVASCULAR DISORDER [None]
  - DILATATION VENTRICULAR [None]
  - DYSPNOEA [None]
  - MALAISE [None]
  - OXYGEN SATURATION DECREASED [None]
  - PLEURAL EFFUSION [None]
  - PULMONARY ARTERIAL PRESSURE INCREASED [None]
  - RENAL IMPAIRMENT [None]
  - RIGHT ATRIAL DILATATION [None]
  - RIGHT VENTRICULAR DYSFUNCTION [None]
  - RIGHT VENTRICULAR FAILURE [None]
  - TRICUSPID VALVE DISEASE [None]
  - TRICUSPID VALVE INCOMPETENCE [None]
  - VENA CAVA THROMBOSIS [None]
  - WHITE BLOOD CELL COUNT DECREASED [None]
